FAERS Safety Report 5944326-9 (Version None)
Quarter: 2008Q4

REPORT INFORMATION
  Report Type: 
  Country: None (occurrence: None)
  Receive Date: 20081105
  Receipt Date: 20081023
  Transmission Date: 20090506
  Serious: No
  Sender: FDA-Public Use
  Company Number: US024882

PATIENT
  Age: 49 Year
  Sex: Female
  Weight: 74.8435 kg

DRUGS (8)
  1. FENTORA [Suspect]
     Indication: PAIN
     Dosage: 800 UG Q4-6HR PRN, MAY TAKE ANOTHER 1 H LATER BUCAL
     Route: 002
     Dates: start: 20081016
  2. ACTIQ [Concomitant]
  3. OXYCONTIN [Concomitant]
  4. PROVIGIL [Concomitant]
  5. MAXALT [Concomitant]
  6. MIGRAINOL [Concomitant]
  7. DILAUDID [Concomitant]
  8. ZOFRAN [Concomitant]

REACTIONS (3)
  - DRUG PRESCRIBING ERROR [None]
  - GINGIVAL BLISTER [None]
  - OROPHARYNGEAL BLISTERING [None]
